FAERS Safety Report 6742097-X (Version None)
Quarter: 2010Q2

REPORT INFORMATION
  Report Type: 
  Country: None (occurrence: None)
  Receive Date: 20100526
  Receipt Date: 20100514
  Transmission Date: 20101027
  Serious: Yes (Hospitalization, Other)
  Sender: FDA-Public Use
  Company Number: PHHY2009TW61037

PATIENT

DRUGS (1)
  1. EXJADE [Suspect]

REACTIONS (5)
  - CAROTID ARTERY STENOSIS [None]
  - DIARRHOEA [None]
  - FALL [None]
  - ORTHOSTATIC HYPOTENSION [None]
  - SYNCOPE [None]
